FAERS Safety Report 4897430-0 (Version None)
Quarter: 2006Q1

REPORT INFORMATION
  Report Type: 
  Country: None (occurrence: None)
  Receive Date: 20060130
  Receipt Date: 20060130
  Transmission Date: 20060701
  Serious: Yes (Other)
  Sender: FDA-Public Use
  Company Number: None

PATIENT
  Sex: Female
  Weight: 53.2 kg

DRUGS (1)
  1. XOLAIR [Suspect]
     Indication: ASTHMA
     Dosage: 300MG   EVERY 2 WEEKS  SQ
     Route: 058
     Dates: start: 20050401, end: 20051101

REACTIONS (1)
  - LUNG NEOPLASM MALIGNANT [None]
